FAERS Safety Report 11895571 (Version 1)
Quarter: 2016Q1

REPORT INFORMATION
  Report Type: Spontaneous
  Country: US (occurrence: None)
  Receive Date: 20160106
  Receipt Date: 20160106
  Transmission Date: 20160526
  Serious: Yes (Other)
  Sender: FDA-Public Use
  Company Number: None

PATIENT
  Age: 82 Year
  Sex: Male
  Weight: 81.65 kg

DRUGS (1)
  1. CICLOPIROX OLAMINE CREAM USP 0.77% [Suspect]
     Active Substance: CICLOPIROX OLAMINE
     Indication: FUNGAL SKIN INFECTION
     Dosage: ONCE DAILY PRN
     Route: 061
     Dates: start: 20151216, end: 20160104

REACTIONS (2)
  - Product quality issue [None]
  - Medication residue present [None]

NARRATIVE: CASE EVENT DATE: 20160104
